FAERS Safety Report 7788111-4 (Version None)
Quarter: 2011Q3

REPORT INFORMATION
  Report Type: 
  Country: None (occurrence: None)
  Receive Date: 20110929
  Receipt Date: 20110929
  Transmission Date: 20111222
  Serious: No
  Sender: FDA-Public Use
  Company Number: None

PATIENT
  Sex: Female
  Weight: 108.8633 kg

DRUGS (2)
  1. RESTASIS [Suspect]
     Indication: HEADACHE
     Dosage: 1 DROP 2X EYE
     Route: 047
     Dates: start: 20110601, end: 20110901
  2. RESTASIS [Suspect]
     Indication: DRY EYE
     Dosage: 1 DROP 2X EYE
     Route: 047
     Dates: start: 20110601, end: 20110901

REACTIONS (1)
  - LETHARGY [None]
